FAERS Safety Report 19238789 (Version 3)
Quarter: 2021Q3

REPORT INFORMATION
  Report Type: Report from Study
  Country: US (occurrence: US)
  Receive Date: 20210510
  Receipt Date: 20210705
  Transmission Date: 20211014
  Serious: Yes (Other)
  Sender: FDA-Public Use
  Company Number: US-BIOGEN-2021BI01008360

PATIENT
  Sex: Male

DRUGS (2)
  1. TECFIDERA [Suspect]
     Active Substance: DIMETHYL FUMARATE
     Indication: MULTIPLE SCLEROSIS
     Dosage: MAINTENANCE DOSE
     Route: 065
     Dates: start: 20140225
  2. TECFIDERA [Suspect]
     Active Substance: DIMETHYL FUMARATE
     Indication: MULTIPLE SCLEROSIS
     Route: 065

REACTIONS (16)
  - Abdominal distension [Unknown]
  - Platelet disorder [Unknown]
  - Irritable bowel syndrome [Not Recovered/Not Resolved]
  - Mental disorder [Unknown]
  - Haemorrhoidal haemorrhage [Not Recovered/Not Resolved]
  - Essential thrombocythaemia [Not Recovered/Not Resolved]
  - Epistaxis [Unknown]
  - Bone marrow disorder [Unknown]
  - Diarrhoea [Unknown]
  - Flatulence [Unknown]
  - Blood cholesterol increased [Not Recovered/Not Resolved]
  - Dumping syndrome [Not Recovered/Not Resolved]
  - Prostatomegaly [Not Recovered/Not Resolved]
  - Chills [Unknown]
  - Dyspepsia [Not Recovered/Not Resolved]
  - Haematochezia [Unknown]

NARRATIVE: CASE EVENT DATE: 2019
